FAERS Safety Report 6305226-8 (Version None)
Quarter: 2009Q3

REPORT INFORMATION
  Report Type: 
  Country: None (occurrence: None)
  Receive Date: 20090810
  Receipt Date: 20090810
  Transmission Date: 20100115
  Serious: No
  Sender: FDA-Public Use
  Company Number: None

PATIENT
  Age: 26 Year
  Weight: 63 kg

DRUGS (2)
  1. VANCOMYCIN [Suspect]
     Indication: POST PROCEDURAL INFECTION
     Dosage: 1 GM Q12 IV
     Route: 042
     Dates: start: 20090706, end: 20090803
  2. VANCOMYCIN [Suspect]

REACTIONS (1)
  - RASH MACULAR [None]
